FAERS Safety Report 22678678 (Version 4)
Quarter: 2024Q1

REPORT INFORMATION
  Report Type: Report from Study
  Country: JP (occurrence: JP)
  Receive Date: 20230706
  Receipt Date: 20240203
  Transmission Date: 20240409
  Serious: Yes (Death, Hospitalization, Other)
  Sender: FDA-Public Use
  Company Number: JP-Ipsen Biopharmaceuticals, Inc.-2023-16613

PATIENT
  Age: 73 Year
  Sex: Female

DRUGS (4)
  1. TAZVERIK [Suspect]
     Active Substance: TAZEMETOSTAT HYDROBROMIDE
     Indication: Follicular lymphoma
     Route: 048
     Dates: start: 20220921, end: 20221003
  2. TAZVERIK [Suspect]
     Active Substance: TAZEMETOSTAT HYDROBROMIDE
     Route: 048
     Dates: start: 20221026, end: 20221115
  3. TAZVERIK [Suspect]
     Active Substance: TAZEMETOSTAT HYDROBROMIDE
     Route: 048
     Dates: start: 20221216, end: 20230118
  4. NOXAFIL [Concomitant]
     Active Substance: POSACONAZOLE
     Indication: Infection prophylaxis
     Dates: start: 20221014, end: 20230118

REACTIONS (5)
  - COVID-19 [Fatal]
  - Hepatic function abnormal [Recovered/Resolved]
  - Pancytopenia [Recovering/Resolving]
  - Cytomegalovirus viraemia [Recovered/Resolved]
  - Taste disorder [Not Recovered/Not Resolved]

NARRATIVE: CASE EVENT DATE: 20220922
